FAERS Safety Report 6026619-2 (Version None)
Quarter: 2008Q4

REPORT INFORMATION
  Report Type: 
  Country: None (occurrence: None)
  Receive Date: 20081231
  Receipt Date: 20081221
  Transmission Date: 20090506
  Serious: Yes (Death)
  Sender: FDA-Public Use
  Company Number: 1-17141710

PATIENT
  Age: 16 Year
  Sex: Male

DRUGS (1)
  1. FENTANYL TRANSDERMAL SYSTEM [Suspect]
     Indication: MUSCULOSKELETAL PAIN
     Dosage: ONE PATCH, ONCE, TRANSDERMAL
     Route: 062
     Dates: start: 20080807, end: 20080807

REACTIONS (2)
  - EPISTAXIS [None]
  - SELF-MEDICATION [None]
